FAERS Safety Report 9370138 (Version 1)
Quarter: 2013Q2

REPORT INFORMATION
  Report Type: Spontaneous
  Country: FR (occurrence: FR)
  Receive Date: 20130626
  Receipt Date: 20130626
  Transmission Date: 20140414
  Serious: Yes (Hospitalization)
  Sender: FDA-Public Use
  Company Number: FR-ASTRAZENECA-2013SE47290

PATIENT
  Age: 1097 Month
  Sex: Female

DRUGS (7)
  1. INEXIUM [Suspect]
     Route: 048
     Dates: end: 201209
  2. FUROSEMIDE [Suspect]
     Route: 048
     Dates: end: 201209
  3. KARDEGIC [Concomitant]
     Route: 048
  4. METFORMINE [Concomitant]
     Route: 048
  5. LECTIL [Concomitant]
     Route: 048
  6. ZOLPIDEM [Concomitant]
  7. DAFALGAN [Concomitant]
     Route: 048

REACTIONS (3)
  - Epilepsy [Unknown]
  - Hyponatraemia [Recovered/Resolved]
  - Malaise [Recovered/Resolved]
